FAERS Safety Report 4631638-4 (Version None)
Quarter: 2005Q2

REPORT INFORMATION
  Report Type: 
  Country: None (occurrence: None)
  Receive Date: 20050407
  Receipt Date: 20050330
  Transmission Date: 20051028
  Serious: Yes (Other)
  Sender: FDA-Public Use
  Company Number: 2004-10-0811

PATIENT
  Age: 21 Year
  Sex: Male
  Weight: 90.7194 kg

DRUGS (2)
  1. AERIUS (DESLORATADINE) TABLETS   ^LIKE CLARINEX^ [Suspect]
     Indication: HYPERSENSITIVITY
     Dosage: 1 TABLET  QD ORAL
     Route: 048
     Dates: start: 20040901, end: 20040930
  2. DRISTAN [Concomitant]

REACTIONS (1)
  - AGEUSIA [None]
